FAERS Safety Report 24703411 (Version 3)
Quarter: 2024Q4

REPORT INFORMATION
  Report Type: Report from Study
  Country: ES (occurrence: ES)
  Receive Date: 20241205
  Receipt Date: 20241230
  Transmission Date: 20250115
  Serious: Yes (Other)
  Sender: ABBVIE
  Company Number: ES-ABBVIE-6032508

PATIENT
  Age: 75 Year
  Sex: Male

DRUGS (3)
  1. CARBIDOPA\LEVODOPA [Suspect]
     Active Substance: CARBIDOPA\LEVODOPA
     Indication: Parkinson^s disease
     Dosage: 240 MG/ML + 12 MG/ML, LAST ADMIN DATE 2024
     Route: 058
     Dates: start: 20241007
  2. CARBIDOPA\LEVODOPA [Suspect]
     Active Substance: CARBIDOPA\LEVODOPA
     Dosage: DOSES HAVE DECREASED (0.52 ML/H, 0.50 ML/H AND 0.20 ML/H), 240 MG/ML + 12 MG/ML
     Route: 058
     Dates: start: 2024
  3. TAMSULOSIN [Suspect]
     Active Substance: TAMSULOSIN
     Indication: Product used for unknown indication
     Route: 065
     Dates: end: 2024

REACTIONS (3)
  - Syncope [Recovered/Resolved]
  - Hallucination [Recovered/Resolved]
  - Fall [Unknown]

NARRATIVE: CASE EVENT DATE: 20240101
